FAERS Safety Report 8326528-X (Version None)
Quarter: 2012Q2

REPORT INFORMATION
  Report Type: 
  Country: None (occurrence: None)
  Receive Date: 20120501
  Receipt Date: 20120430
  Transmission Date: 20120825
  Serious: No
  Sender: FDA-Public Use
  Company Number: US-PFIZER INC-2012106455

PATIENT
  Sex: Male

DRUGS (2)
  1. CHANTIX [Suspect]
     Indication: SMOKING CESSATION THERAPY
     Dosage: 0.5 MG, DAILY
     Route: 048
     Dates: start: 20120202
  2. CHANTIX [Suspect]
     Dosage: UNK
     Route: 048
     Dates: end: 20120101

REACTIONS (2)
  - DRUG INEFFECTIVE [None]
  - STRESS [None]
